FAERS Safety Report 4821429-3 (Version None)
Quarter: 2005Q4

REPORT INFORMATION
  Report Type: 
  Country: None (occurrence: None)
  Receive Date: 20051104
  Receipt Date: 20051104
  Transmission Date: 20060501
  Serious: No
  Sender: FDA-Public Use
  Company Number: None

PATIENT

DRUGS (3)
  1. ACETYLCYSTEINE [Suspect]
     Dosage: SOLUTION
  2. MUCOMYST [Suspect]
     Dosage: SOLUTION
  3. MUCINEX [Suspect]
     Dosage: TABLET, EXTENDED RELEASE

REACTIONS (2)
  - DRUG DISPENSING ERROR [None]
  - WRONG DRUG ADMINISTERED [None]
